FAERS Safety Report 6999317-6 (Version None)
Quarter: 2010Q3

REPORT INFORMATION
  Report Type: 
  Country: None (occurrence: None)
  Receive Date: 20100920
  Receipt Date: 20100517
  Transmission Date: 20110219
  Serious: Yes (Hospitalization)
  Sender: FDA-Public Use
  Company Number: US-ASTRAZENECA-2007UW11970

PATIENT
  Age: 17848 Day
  Sex: Male

DRUGS (15)
  1. SEROQUEL [Suspect]
     Route: 048
     Dates: start: 20040302, end: 20041101
  2. NIFEREX [Concomitant]
     Route: 048
     Dates: start: 20051211
  3. LOPRESSOR [Concomitant]
     Route: 048
     Dates: start: 20051211
  4. HYTRIN [Concomitant]
     Route: 048
     Dates: start: 20051211
  5. NORCO [Concomitant]
     Indication: PAIN
     Dosage: 10 MG 1-2 PO Q 6 H  PRN
     Route: 048
     Dates: start: 20051211
  6. PROZAC [Concomitant]
     Dates: start: 20030101, end: 20050615
  7. WELLBUTRIN XL [Concomitant]
     Dates: start: 20031001, end: 20031101
  8. LAMICTAL [Concomitant]
     Dates: start: 20031101, end: 20040609
  9. TOPAMAX [Concomitant]
     Dates: start: 20040609, end: 20060123
  10. CYMBALTA [Concomitant]
     Dates: start: 20041111, end: 20050620
  11. CYMBALTA [Concomitant]
     Dates: start: 20050812, end: 20060123
  12. EFFEXOR XR [Concomitant]
     Dates: start: 20050620
  13. AMBIEN CR [Concomitant]
     Dates: start: 20051118
  14. XANAX [Concomitant]
     Dates: start: 20060123
  15. DEPAKOTE ER [Concomitant]
     Dates: start: 20030101

REACTIONS (1)
  - TYPE 2 DIABETES MELLITUS [None]
